FAERS Safety Report 5253123-1 (Version None)
Quarter: 2007Q1

REPORT INFORMATION
  Report Type: 
  Country: None (occurrence: None)
  Receive Date: 20070301
  Receipt Date: 20070221
  Transmission Date: 20070707
  Serious: Yes (Hospitalization)
  Sender: FDA-Public Use
  Company Number: NO-GLAXOSMITHKLINE-B0429356A

PATIENT
  Age: 75 Year
  Sex: Female

DRUGS (6)
  1. ZYBAN [Suspect]
     Route: 048
  2. NITRAZEPAM [Suspect]
     Indication: INSOMNIA
     Dosage: 5MG AT NIGHT
     Route: 048
     Dates: start: 20050901, end: 20060518
  3. SURMONTIL [Suspect]
     Indication: DEPRESSION
     Route: 048
     Dates: start: 20050901, end: 20060522
  4. ORFIRIL LONG [Concomitant]
     Indication: EPILEPSY
     Dosage: 300MG SEE DOSAGE TEXT
     Dates: start: 20030101
  5. PARALGIN FORTE [Concomitant]
     Dosage: 1TAB AS REQUIRED
  6. LESCOL [Concomitant]
     Dosage: 80MG AT NIGHT

REACTIONS (6)
  - BALANCE DISORDER [None]
  - CONFUSIONAL STATE [None]
  - FALL [None]
  - GAIT DISTURBANCE [None]
  - MOVEMENT DISORDER [None]
  - TREMOR [None]
